FAERS Safety Report 18229076 (Version 1)
Quarter: 2020Q3

REPORT INFORMATION
  Report Type: Spontaneous
  Country: DE (occurrence: DE)
  Receive Date: 20200903
  Receipt Date: 20200903
  Transmission Date: 20201103
  Serious: Yes (Other)
  Sender: FDA-Public Use
  Company Number: NVSC2020DE240001

PATIENT
  Sex: Female
  Weight: 105 kg

DRUGS (2)
  1. BISOHEXAL [Suspect]
     Active Substance: BISOPROLOL FUMARATE
     Indication: PRODUCT USED FOR UNKNOWN INDICATION
     Dosage: 2.5 (UNIT NOT SPECIFIED)
     Route: 065
  2. VENLAFAXIN ^HEXAL^ [Suspect]
     Active Substance: VENLAFAXINE HYDROCHLORIDE
     Indication: PRODUCT USED FOR UNKNOWN INDICATION
     Dosage: 150 (UNIT NOT SPECIFIED)
     Route: 065

REACTIONS (5)
  - Superficial vein prominence [Unknown]
  - Muscular weakness [Unknown]
  - Thrombophlebitis [Unknown]
  - Tension [Unknown]
  - Limb discomfort [Unknown]

NARRATIVE: CASE EVENT DATE: 2015
